FAERS Safety Report 26218074 (Version 1)
Quarter: 2025Q4

REPORT INFORMATION
  Report Type: Spontaneous
  Country: US (occurrence: US)
  Receive Date: 20251231
  Receipt Date: 20251231
  Transmission Date: 20260118
  Serious: No
  Sender: JOHNSON AND JOHNSON
  Company Number: US-JNJFOC-20251229693

PATIENT

DRUGS (2)
  1. INLEXZO [Suspect]
     Active Substance: GEMCITABINE
     Indication: Product used for unknown indication
  2. INLEXZO [Suspect]
     Active Substance: GEMCITABINE

REACTIONS (3)
  - Bladder spasm [Unknown]
  - Pollakiuria [Unknown]
  - Haematuria [Unknown]
